FAERS Safety Report 8328813-4 (Version None)
Quarter: 2012Q2

REPORT INFORMATION
  Report Type: 
  Country: None (occurrence: None)
  Receive Date: 20120502
  Receipt Date: 20100902
  Transmission Date: 20120825
  Serious: No
  Sender: FDA-Public Use
  Company Number: US-TEVA-2010004717

PATIENT
  Sex: Female
  Weight: 71.732 kg

DRUGS (3)
  1. NUVIGIL [Suspect]
     Dosage: 250 MILLIGRAM;
     Route: 048
     Dates: start: 20100830
  2. ALBUTEROL [Concomitant]
     Dates: start: 19980101
  3. NUVIGIL [Suspect]
     Indication: NARCOLEPSY
     Dosage: 150 MILLIGRAM;
     Route: 048
     Dates: start: 20100806, end: 20100829

REACTIONS (3)
  - GLOSSODYNIA [None]
  - DRUG INEFFECTIVE [None]
  - TONGUE DISORDER [None]
